FAERS Safety Report 4589657-2 (Version None)
Quarter: 2005Q1

REPORT INFORMATION
  Report Type: 
  Country: None (occurrence: None)
  Receive Date: 20050223
  Receipt Date: 20050214
  Transmission Date: 20050727
  Serious: Yes (Hospitalization, Other)
  Sender: FDA-Public Use
  Company Number: PHNU2005DE00939

PATIENT
  Age: 79 Year
  Sex: Male

DRUGS (1)
  1. EXELON [Suspect]
     Dosage: 1.5 MG/DAY
     Route: 048
     Dates: start: 20041001

REACTIONS (3)
  - DIPLOPIA [None]
  - EYELID PTOSIS [None]
  - VISUAL DISTURBANCE [None]
